FAERS Safety Report 11123529 (Version 1)
Quarter: 2015Q2

REPORT INFORMATION
  Report Type: Spontaneous
  Country: TH (occurrence: TH)
  Receive Date: 20150519
  Receipt Date: 20150519
  Transmission Date: 20150821
  Serious: Yes (Hospitalization)
  Sender: FDA-Public Use
  Company Number: TH-MALLINCKRODT-T201502551

PATIENT
  Age: 22 Year
  Sex: Male
  Weight: 49 kg

DRUGS (1)
  1. OPTIRAY [Suspect]
     Active Substance: IOVERSOL
     Indication: COMPUTERISED TOMOGRAM HEAD
     Dosage: 100 ML, SINGLE
     Route: 065
     Dates: start: 20150403, end: 20150403

REACTIONS (5)
  - Pruritus [Recovered/Resolved]
  - Rash generalised [Recovered/Resolved]
  - Chills [Recovered/Resolved]
  - Swelling [Recovered/Resolved]
  - Chest discomfort [Recovered/Resolved]

NARRATIVE: CASE EVENT DATE: 20150403
